FAERS Safety Report 5103595-8 (Version None)
Quarter: 2006Q3

REPORT INFORMATION
  Report Type: 
  Country: None (occurrence: None)
  Receive Date: 20060911
  Receipt Date: 20060911
  Transmission Date: 20061208
  Serious: Yes (Other)
  Sender: FDA-Public Use
  Company Number: None

PATIENT
  Age: 16 Year
  Sex: Female
  Weight: 71.2147 kg

DRUGS (1)
  1. TUBERSOL [Suspect]
     Indication: TUBERCULIN TEST
     Dosage: .01ML    RA   SQ
     Route: 058
     Dates: start: 20060906

REACTIONS (5)
  - BURNING SENSATION [None]
  - PRURITUS GENERALISED [None]
  - PYREXIA [None]
  - SWELLING FACE [None]
  - THROAT TIGHTNESS [None]
